FAERS Safety Report 9020112 (Version 1)
Quarter: 2013Q1

REPORT INFORMATION
  Report Type: Spontaneous
  Country: None (occurrence: US)
  Receive Date: 20130119
  Receipt Date: 20130119
  Transmission Date: 20140127
  Serious: No
  Sender: FDA-Public Use
  Company Number: US-ALLERGAN-1210807US

PATIENT
  Age: 72 Year
  Sex: Male

DRUGS (1)
  1. BOTOX? [Suspect]
     Indication: BLEPHAROSPASM
     Dosage: UNK UNK, SINGLE
     Route: 030

REACTIONS (1)
  - Eyelid ptosis [Unknown]
